FAERS Safety Report 5062449-6 (Version None)
Quarter: 2006Q3

REPORT INFORMATION
  Report Type: 
  Country: None (occurrence: None)
  Receive Date: 20060726
  Receipt Date: 20060714
  Transmission Date: 20061208
  Serious: Yes (Other)
  Sender: FDA-Public Use
  Company Number: 2006UW14841

PATIENT
  Sex: Female

DRUGS (2)
  1. CRESTOR [Suspect]
     Route: 048
  2. MULTIVITAMIN [Concomitant]

REACTIONS (5)
  - COLD SWEAT [None]
  - CYANOSIS [None]
  - PAIN [None]
  - RAYNAUD'S PHENOMENON [None]
  - SKIN NECROSIS [None]
